FAERS Safety Report 5414857-9 (Version None)
Quarter: 2007Q3

REPORT INFORMATION
  Report Type: 
  Country: None (occurrence: None)
  Receive Date: 20070815
  Receipt Date: 20070808
  Transmission Date: 20080115
  Serious: Yes (Hospitalization)
  Sender: FDA-Public Use
  Company Number: PHBS2007JP10836

PATIENT
  Age: 2 Year
  Sex: Female

DRUGS (1)
  1. TEGRETOL [Suspect]
     Indication: EPILEPSY
     Dosage: 3 MG/KG/DAY
     Route: 048
     Dates: start: 20070623, end: 20070626

REACTIONS (1)
  - LOSS OF CONSCIOUSNESS [None]
